FAERS Safety Report 17246120 (Version 6)
Quarter: 2024Q1

REPORT INFORMATION
  Report Type: Other
  Country: US (occurrence: None)
  Receive Date: 20200108
  Receipt Date: 20240228
  Transmission Date: 20240410
  Serious: Yes (Hospitalization, Other)
  Sender: FDA-Public Use
  Company Number: US-ROCHE-2514675

PATIENT
  Sex: Male
  Weight: 104 kg

DRUGS (27)
  1. OCREVUS [Suspect]
     Active Substance: OCRELIZUMAB
     Indication: Relapsing-remitting multiple sclerosis
     Dosage: DATE OF TREATMENT: 05/MAR/2018, 10/SEP/2018, 12/MAR/2019, 24/OCT/2019, 18/FEB/2021
     Route: 042
     Dates: start: 20170828, end: 2022
  2. OCREVUS [Suspect]
     Active Substance: OCRELIZUMAB
     Route: 042
     Dates: start: 20170913, end: 2022
  3. OCREVUS [Suspect]
     Active Substance: OCRELIZUMAB
     Route: 042
     Dates: start: 201708, end: 202102
  4. LITHIUM [Concomitant]
     Active Substance: LITHIUM
     Indication: Bipolar disorder
  5. LAMOTRIGINE [Concomitant]
     Active Substance: LAMOTRIGINE
  6. ALLEGRA [Concomitant]
     Active Substance: FEXOFENADINE HYDROCHLORIDE
     Indication: Seasonal allergy
  7. OXYBUTYNIN [Concomitant]
     Active Substance: OXYBUTYNIN\OXYBUTYNIN CHLORIDE
     Dosage: 1 10MG PILL IN THE MORNING
     Route: 048
     Dates: start: 2015
  8. OXYBUTYNIN [Concomitant]
     Active Substance: OXYBUTYNIN\OXYBUTYNIN CHLORIDE
     Dosage: 1 15MG PILL AT NIGHT
     Route: 048
     Dates: start: 2015
  9. PROVIGIL [Concomitant]
     Active Substance: MODAFINIL
     Indication: Energy increased
     Route: 048
     Dates: start: 201809
  10. GABAPENTIN [Concomitant]
     Active Substance: GABAPENTIN
     Indication: Pain
     Route: 048
     Dates: start: 2017
  11. GABAPENTIN [Concomitant]
     Active Substance: GABAPENTIN
     Route: 048
  12. BACLOFEN [Concomitant]
     Active Substance: BACLOFEN
     Indication: Muscle spasticity
     Route: 048
     Dates: start: 2004
  13. NAPROXEN [Concomitant]
     Active Substance: NAPROXEN
     Indication: Pain
     Route: 048
  14. CALCIUM CITRATE PLUS [Concomitant]
     Route: 048
  15. AMBIEN [Concomitant]
     Active Substance: ZOLPIDEM TARTRATE
     Dosage: AT BEDTIME
     Route: 048
  16. VITAMIN D3 [Concomitant]
     Active Substance: CHOLECALCIFEROL
     Dosage: 5000 UNIT
     Route: 048
  17. FISH OIL [Concomitant]
     Active Substance: FISH OIL
     Route: 048
  18. VALTREX [Concomitant]
     Active Substance: VALACYCLOVIR HYDROCHLORIDE
     Indication: Oral herpes
     Route: 048
  19. VALTREX [Concomitant]
     Active Substance: VALACYCLOVIR HYDROCHLORIDE
     Route: 048
  20. VALIUM [Concomitant]
     Active Substance: DIAZEPAM
     Dosage: 30 MINUTES BEFORE MRI
     Route: 065
  21. LITHIUM ASPARTATE [Concomitant]
     Active Substance: LITHIUM ASPARTATE
  22. TRUVADA [Concomitant]
     Active Substance: EMTRICITABINE\TENOFOVIR DISOPROXIL FUMARATE
     Dosage: 200-300 MG
     Route: 048
  23. OXYBUTYNIN CHLORIDE [Concomitant]
     Active Substance: OXYBUTYNIN CHLORIDE
     Route: 048
  24. SOLU-MEDROL [Concomitant]
     Active Substance: METHYLPREDNISOLONE SODIUM SUCCINATE
     Dosage: IV PER DAY X 2 DAYS, INFUSE OVER 1.5-2 HOURS AS TOLERATED
     Route: 042
  25. ZOLPIDEM [Concomitant]
     Active Substance: ZOLPIDEM TARTRATE
     Route: 048
  26. KEFLEX [Concomitant]
     Active Substance: CEPHALEXIN
     Route: 048
  27. BACTRIM DS [Concomitant]
     Active Substance: SULFAMETHOXAZOLE\TRIMETHOPRIM
     Dosage: 800-160 MG
     Route: 048

REACTIONS (15)
  - Kidney infection [Recovered/Resolved]
  - Cystitis [Recovered/Resolved]
  - Urinary tract infection [Recovered/Resolved]
  - Cellulitis [Recovered/Resolved]
  - Sepsis [Unknown]
  - Staphylococcal infection [Unknown]
  - Bacterial infection [Unknown]
  - JC polyomavirus test positive [Unknown]
  - Night sweats [Recovering/Resolving]
  - Upper respiratory tract infection [Recovering/Resolving]
  - Fatigue [Unknown]
  - Muscle spasms [Unknown]
  - Cognitive disorder [Unknown]
  - Immunodeficiency [Unknown]
  - Enuresis [Unknown]

NARRATIVE: CASE EVENT DATE: 20190601
